FAERS Safety Report 7258659-X (Version None)
Quarter: 2011Q1

REPORT INFORMATION
  Report Type: 
  Country: None (occurrence: None)
  Receive Date: 20110129
  Receipt Date: 20100628
  Transmission Date: 20110831
  Serious: No
  Sender: FDA-Public Use
  Company Number: US-ABBOTT-09P-163-0612094-00

PATIENT
  Sex: Female
  Weight: 97.61 kg

DRUGS (4)
  1. HUMIRA [Suspect]
     Route: 058
     Dates: start: 20100101, end: 20100601
  2. HUMIRA [Suspect]
     Indication: PSORIASIS
     Dates: start: 20091113
  3. OINTMENTS AND CREAMS [Concomitant]
     Indication: PSORIASIS
     Route: 061
  4. HUMIRA [Suspect]
     Route: 058
     Dates: start: 20100601

REACTIONS (1)
  - DRUG INEFFECTIVE [None]
